FAERS Safety Report 24833796 (Version 1)
Quarter: 2025Q1

REPORT INFORMATION
  Report Type: Report from Study
  Country: US (occurrence: US)
  Receive Date: 20250112
  Receipt Date: 20250112
  Transmission Date: 20250409
  Serious: Yes (Other)
  Sender: ABBVIE
  Company Number: US-ABBVIE-6078521

PATIENT
  Age: 73 Year
  Sex: Male

DRUGS (1)
  1. SKYRIZI [Suspect]
     Active Substance: RISANKIZUMAB-RZAA
     Indication: Psoriasis
     Route: 058
     Dates: start: 20230630

REACTIONS (4)
  - Cardiac pacemaker removal [Recovering/Resolving]
  - Haemorrhage [Unknown]
  - Musculoskeletal disorder [Unknown]
  - Post procedural complication [Unknown]

NARRATIVE: CASE EVENT DATE: 20241211
